FAERS Safety Report 19844684 (Version 1)
Quarter: 2021Q3

REPORT INFORMATION
  Report Type: Spontaneous
  Country: GB (occurrence: GB)
  Receive Date: 20210917
  Receipt Date: 20210917
  Transmission Date: 20211014
  Serious: Yes (Other)
  Sender: FDA-Public Use
  Company Number: GB-ORGANON-O2109GBR000514

PATIENT
  Age: 46 Year
  Sex: Female
  Weight: 94.34 kg

DRUGS (1)
  1. MIRTAZAPINE. [Suspect]
     Active Substance: MIRTAZAPINE
     Indication: DEPRESSION SUICIDAL
     Dosage: 15 MG
     Route: 048
     Dates: start: 20210726

REACTIONS (1)
  - Adverse drug reaction [Unknown]
